FAERS Safety Report 17139549 (Version 1)
Quarter: 2019Q4

REPORT INFORMATION
  Report Type: Spontaneous
  Country: SE (occurrence: SE)
  Receive Date: 20191211
  Receipt Date: 20191211
  Transmission Date: 20200122
  Serious: Yes (Hospitalization, Other)
  Sender: FDA-Public Use
  Company Number: SE-GLAXOSMITHKLINE-SE2019GSK219784

PATIENT
  Age: 41 Year
  Sex: Female

DRUGS (10)
  1. NALTREXONE [Suspect]
     Active Substance: NALTREXONE
     Indication: PRODUCT USED FOR UNKNOWN INDICATION
     Dosage: 3 TABLET
     Route: 048
     Dates: start: 20181026, end: 20181026
  2. OLANZAPINE. [Suspect]
     Active Substance: OLANZAPINE
     Indication: PRODUCT USED FOR UNKNOWN INDICATION
     Dosage: 3 TABLET
     Route: 048
     Dates: start: 20181026, end: 20181026
  3. PREGABALIN. [Suspect]
     Active Substance: PREGABALIN
     Dosage: 6 TABLET
     Route: 048
     Dates: start: 20181026, end: 20181026
  4. STESOLID [Suspect]
     Active Substance: DIAZEPAM
     Indication: PRODUCT USED FOR UNKNOWN INDICATION
     Dosage: 3 TABLET
     Route: 048
     Dates: start: 20181026, end: 20181026
  5. LAMICTAL [Suspect]
     Active Substance: LAMOTRIGINE
     Indication: PRODUCT USED FOR UNKNOWN INDICATION
     Dosage: 6 ST
     Route: 048
     Dates: start: 20181026, end: 20181026
  6. CISORDINOL [Suspect]
     Active Substance: ZUCLOPENTHIXOL
     Indication: PRODUCT USED FOR UNKNOWN INDICATION
     Dosage: 3 TABLET
     Route: 048
     Dates: start: 20181026, end: 20181026
  7. CAMPRAL [Suspect]
     Active Substance: ACAMPROSATE CALCIUM
     Indication: PRODUCT USED FOR UNKNOWN INDICATION
     Dosage: 16 TABLET
     Route: 048
     Dates: start: 20181026, end: 20181026
  8. PREGABALIN. [Suspect]
     Active Substance: PREGABALIN
     Indication: PRODUCT USED FOR UNKNOWN INDICATION
     Dosage: 6 TABLET
     Route: 048
     Dates: start: 20181026, end: 20181026
  9. ZOPICLONE [Suspect]
     Active Substance: ZOPICLONE
     Indication: PRODUCT USED FOR UNKNOWN INDICATION
     Dosage: 3 TABL
     Route: 048
     Dates: start: 20181026, end: 20181026
  10. PROPAVAN [Suspect]
     Active Substance: PROPIOMAZINE
     Indication: PRODUCT USED FOR UNKNOWN INDICATION
     Dosage: 20 TABLET
     Route: 048
     Dates: start: 20181026, end: 20181026

REACTIONS (3)
  - Intentional overdose [Unknown]
  - Depressed level of consciousness [Unknown]
  - Intentional self-injury [Unknown]

NARRATIVE: CASE EVENT DATE: 20181026
